FAERS Safety Report 7550137-3 (Version None)
Quarter: 2011Q2

REPORT INFORMATION
  Report Type: 
  Country: None (occurrence: None)
  Receive Date: 20110615
  Receipt Date: 20110606
  Transmission Date: 20111010
  Serious: Yes (Hospitalization, Disabling)
  Sender: FDA-Public Use
  Company Number: US-ASTRAZENECA-2011SE34462

PATIENT
  Age: 58 Year
  Sex: Male
  Weight: 54.4 kg

DRUGS (7)
  1. SEROQUEL [Suspect]
     Indication: SLEEP DISORDER
     Route: 048
     Dates: start: 20060101
  2. CRESTOR [Suspect]
     Indication: BLOOD CHOLESTEROL ABNORMAL
     Route: 048
  3. GENERIC CELEXA [Concomitant]
  4. ASPIRIN [Concomitant]
  5. KLONOPIN [Concomitant]
  6. SEROQUEL [Suspect]
     Indication: DEPRESSION
     Route: 048
     Dates: start: 20060101
  7. SEROQUEL [Suspect]
     Indication: PERSONALITY DISORDER
     Route: 048
     Dates: start: 20060101

REACTIONS (8)
  - OFF LABEL USE [None]
  - CHEST PAIN [None]
  - ANXIETY [None]
  - WEIGHT DECREASED [None]
  - POST-TRAUMATIC PAIN [None]
  - HEAD INJURY [None]
  - INSOMNIA [None]
  - DRUG DOSE OMISSION [None]
